FAERS Safety Report 18248074 (Version 1)
Quarter: 2020Q3

REPORT INFORMATION
  Report Type: Spontaneous
  Country: US (occurrence: US)
  Receive Date: 20200909
  Receipt Date: 20200909
  Transmission Date: 20201103
  Serious: No
  Sender: FDA-Public Use
  Company Number: US-PERRIGO-20US008741

PATIENT
  Age: 47 Year
  Sex: Female
  Weight: 81.63 kg

DRUGS (3)
  1. ALBUTEROL SULFATE. [Suspect]
     Active Substance: ALBUTEROL SULFATE
     Dosage: PARTIAL DOSE, TID, PRN
     Route: 055
     Dates: start: 20200608, end: 202006
  2. ALBUTEROL SULFATE. [Suspect]
     Active Substance: ALBUTEROL SULFATE
     Indication: ASTHMA
     Dosage: 180 MCG, TID, PRN
     Route: 055
     Dates: start: 202003, end: 20200508
  3. ALBUTEROL SULFATE. [Suspect]
     Active Substance: ALBUTEROL SULFATE
     Dosage: PARTIAL DOSE, TID, PRN
     Route: 055
     Dates: start: 20200508, end: 20200608

REACTIONS (3)
  - Underdose [Recovered/Resolved]
  - Drug administered in wrong device [Recovered/Resolved]
  - Device delivery system issue [Recovered/Resolved]

NARRATIVE: CASE EVENT DATE: 202003
